FAERS Safety Report 24126222 (Version 2)
Quarter: 2024Q3

REPORT INFORMATION
  Report Type: Report from Study
  Country: CA (occurrence: None)
  Receive Date: 20240723
  Receipt Date: 20240823
  Transmission Date: 20241017
  Serious: Yes (Other)
  Sender: ORION
  Company Number: CA-PFIZER INC-202400218726

PATIENT
  Age: 76 Year
  Sex: Female

DRUGS (14)
  1. METHOTREXATE [Suspect]
     Active Substance: METHOTREXATE
     Indication: Pain
  2. METHOTREXATE [Suspect]
     Active Substance: METHOTREXATE
  3. ACTEMRA [Suspect]
     Active Substance: TOCILIZUMAB
     Indication: Rheumatoid arthritis
     Dosage: 1 CYCLICAL
  4. GABAPENTIN [Suspect]
     Active Substance: GABAPENTIN
     Indication: Pain
  5. AMLODIPINE [Concomitant]
     Active Substance: AMLODIPINE BESYLATE
  6. APIXABAN [Concomitant]
     Active Substance: APIXABAN
  7. BISOPROLOL [Concomitant]
     Active Substance: BISOPROLOL\BISOPROLOL FUMARATE
  8. BREO ELLIPTA [Concomitant]
     Active Substance: FLUTICASONE FUROATE\VILANTEROL TRIFENATATE
  9. EZETIMIBE [Concomitant]
     Active Substance: EZETIMIBE
  10. GLUCOSAMINE [Concomitant]
     Active Substance: GLUCOSAMINE
  11. LIPITOR [Concomitant]
     Active Substance: ATORVASTATIN CALCIUM
  12. OLMESARTAN [Concomitant]
     Active Substance: OLMESARTAN
  13. PREDNISONE [Concomitant]
     Active Substance: PREDNISONE
  14. ALBUTEROL [Concomitant]
     Active Substance: ALBUTEROL

REACTIONS (9)
  - Drug ineffective [Unknown]
  - Cough [Unknown]
  - Lower respiratory tract congestion [Unknown]
  - Pneumonia [Unknown]
  - Sinus congestion [Unknown]
  - Arthralgia [Unknown]
  - Herpes zoster [Unknown]
  - Off label use [Unknown]
  - Product use in unapproved indication [Unknown]
